FAERS Safety Report 7797848-2 (Version None)
Quarter: 2011Q4

REPORT INFORMATION
  Report Type: 
  Country: None (occurrence: None)
  Receive Date: 20111005
  Receipt Date: 20110929
  Transmission Date: 20120403
  Serious: Yes (Hospitalization)
  Sender: FDA-Public Use
  Company Number: FR-BRISTOL-MYERS SQUIBB COMPANY-16118317

PATIENT
  Age: 62 Year
  Sex: Male

DRUGS (5)
  1. TRUVADA [Suspect]
     Route: 048
     Dates: start: 20101201
  2. REYATAZ [Suspect]
     Route: 048
     Dates: start: 20110813
  3. PREZISTA [Suspect]
     Route: 048
     Dates: start: 20110513, end: 20110813
  4. NORVIR [Suspect]
     Route: 048
     Dates: start: 20110513, end: 20110813
  5. HERBAL MIXTURE [Concomitant]

REACTIONS (2)
  - CONDITION AGGRAVATED [None]
  - HAEMATOMA [None]
